FAERS Safety Report 8237150-8 (Version None)
Quarter: 2012Q1

REPORT INFORMATION
  Report Type: 
  Country: None (occurrence: None)
  Receive Date: 20120327
  Receipt Date: 20120321
  Transmission Date: 20120608
  Serious: No
  Sender: FDA-Public Use
  Company Number: US-PFIZER INC-2012074155

PATIENT
  Sex: Female
  Weight: 68.027 kg

DRUGS (4)
  1. SUBOXONE [Concomitant]
     Indication: BACK PAIN
     Dosage: UNK
  2. SONATA [Suspect]
     Indication: SLEEP DISORDER
     Dosage: 10 MG, EVERY OTHER DAY
     Dates: start: 20110101
  3. LUNESTA [Concomitant]
     Indication: SLEEP DISORDER
     Dosage: 2 MG, EVERY OTHER DAY
  4. SUBOXONE [Concomitant]
     Indication: MIGRAINE

REACTIONS (1)
  - DRUG SCREEN FALSE POSITIVE [None]
